FAERS Safety Report 23287034 (Version 1)
Quarter: 2023Q4

REPORT INFORMATION
  Report Type: Spontaneous
  Country: FR (occurrence: FR)
  Receive Date: 20231212
  Receipt Date: 20231212
  Transmission Date: 20240110
  Serious: Yes (Other)
  Sender: FDA-Public Use
  Company Number: None

PATIENT
  Age: 30 Year
  Sex: Female
  Weight: 58 kg

DRUGS (21)
  1. PIPERACILLIN [Suspect]
     Active Substance: PIPERACILLIN
     Indication: Sepsis
     Route: 065
     Dates: start: 20230704, end: 20230706
  2. SIMULECT [Suspect]
     Active Substance: BASILIXIMAB
     Indication: Prophylaxis
     Dosage: POWDER AND SOLVENT FOR SOLUTION FOR INJECTION OR FOR INFUSION
     Route: 065
     Dates: start: 20230629, end: 20230703
  3. CEFTRIAXONE [Suspect]
     Active Substance: CEFTRIAXONE\CEFTRIAXONE SODIUM
     Indication: Sepsis
     Route: 065
     Dates: start: 20230703, end: 20230703
  4. ACETAMINOPHEN [Suspect]
     Active Substance: ACETAMINOPHEN
     Indication: Product used for unknown indication
     Route: 065
  5. PIPERACILLIN SODIUM\TAZOBACTAM SODIUM [Suspect]
     Active Substance: PIPERACILLIN SODIUM\TAZOBACTAM SODIUM
     Indication: Sepsis
     Route: 065
     Dates: start: 20230704, end: 20230706
  6. LANSOPRAZOLE [Suspect]
     Active Substance: LANSOPRAZOLE
     Indication: Product used for unknown indication
     Dosage: 1 TAB IN THE EVENING
     Route: 065
  7. CALCIUM PHOSPHATE, DIBASIC, ANHYDROUS\MAGNESIUM GLYCEROPHOSPHATE\PHOSP [Suspect]
     Active Substance: CALCIUM PHOSPHATE, DIBASIC, ANHYDROUS\MAGNESIUM GLYCEROPHOSPHATE\PHOSPHORIC ACID\SODIUM PHOSPHATE, D
     Indication: Product used for unknown indication
     Dosage: 100GTTX2/D
     Route: 065
  8. PROGRAF [Suspect]
     Active Substance: TACROLIMUS
     Indication: Product used for unknown indication
     Dosage: 1 TAB IN THE MORNING
     Route: 065
  9. PREDNISONE [Suspect]
     Active Substance: PREDNISONE
     Indication: Prophylaxis
     Dosage: 1 TAB IN THE MORNING
     Route: 065
     Dates: start: 20230629
  10. OXYCODONE [Suspect]
     Active Substance: OXYCODONE
     Indication: Pain
     Dosage: 5MG IF NECESSARY (LAST TAKEN ON 08/07)
     Route: 065
     Dates: start: 20230704, end: 20230708
  11. AMPHOTERICIN B [Suspect]
     Active Substance: AMPHOTERICIN B
     Indication: Product used for unknown indication
     Dosage: 1TSP.X3/D
     Route: 065
  12. AMIKACIN [Suspect]
     Active Substance: AMIKACIN
     Indication: Sepsis
     Route: 065
     Dates: start: 20230703, end: 20230703
  13. BISOPROLOL [Suspect]
     Active Substance: BISOPROLOL\BISOPROLOL FUMARATE
     Indication: Product used for unknown indication
     Route: 065
  14. PHLOROGLUCINOL [Suspect]
     Active Substance: PHLOROGLUCINOL
     Indication: Pain
     Route: 065
     Dates: start: 20230703, end: 20230703
  15. AMLODIPINE [Suspect]
     Active Substance: AMLODIPINE BESYLATE
     Indication: Hypertension
     Route: 065
     Dates: start: 20230629, end: 20230728
  16. LOVENOX [Suspect]
     Active Substance: ENOXAPARIN SODIUM
     Indication: Prophylaxis
     Dosage: 4,000 IU ANTI-XA/0.4 ML, SOLUTION FOR INJECTION IN CARTRIDGE
     Route: 065
     Dates: start: 20230629, end: 20230714
  17. OXYBUTYNIN [Suspect]
     Active Substance: OXYBUTYNIN
     Indication: Pollakiuria
     Route: 065
     Dates: start: 20230703, end: 20230704
  18. CELLCEPT [Suspect]
     Active Substance: MYCOPHENOLATE MOFETIL
     Indication: Product used for unknown indication
     Dosage: 1 TAB IN THE MORNING AND 1 TAB IN THE EVENING
     Route: 065
  19. MOVICOL [Suspect]
     Active Substance: POLYETHYLENE GLYCOL 3350\POTASSIUM CHLORIDE\SODIUM BICARBONATE\SODIUM CHLORIDE
     Indication: Product used for unknown indication
     Dosage: 1 TO 2 SACHETS/DAY IF NECESSARY
     Route: 065
  20. ONDANSETRON [Suspect]
     Active Substance: ONDANSETRON
     Indication: Prophylaxis
     Route: 065
     Dates: start: 20230629, end: 20230703
  21. AMYLOCAINE HYDROCHLORIDE [Suspect]
     Active Substance: AMYLOCAINE HYDROCHLORIDE
     Indication: Pollakiuria
     Route: 065
     Dates: start: 20230703, end: 20230704

REACTIONS (1)
  - Hyperacusis [Recovering/Resolving]

NARRATIVE: CASE EVENT DATE: 20230701
